FAERS Safety Report 4400983-X (Version None)
Quarter: 2004Q3

REPORT INFORMATION
  Report Type: 
  Country: None (occurrence: None)
  Receive Date: 20040907
  Receipt Date: 20030905
  Transmission Date: 20050211
  Serious: No
  Sender: FDA-Public Use
  Company Number: US-BRISTOL-MYERS SQUIBB COMPANY-12376232

PATIENT
  Age: 84 Year
  Sex: Female
  Weight: 64 kg

DRUGS (13)
  1. COUMADIN [Suspect]
     Indication: ATRIAL FIBRILLATION
     Dosage: DOSE VARIED.
     Route: 048
  2. SYNTHROID [Concomitant]
  3. ATENOLOL [Concomitant]
  4. LANOXIN [Concomitant]
  5. TYLENOL W/ CODEINE [Concomitant]
  6. ROXICET [Concomitant]
  7. MULTI-VITAMIN [Concomitant]
  8. LIPOIC ACID [Concomitant]
  9. BIOFLAVONOID [Concomitant]
  10. VITAMIN C [Concomitant]
  11. ACETYLCARNITINE [Concomitant]
  12. CALCIUM [Concomitant]
  13. MAGNESIUM [Concomitant]

REACTIONS (2)
  - ARTHRALGIA [None]
  - HAEMARTHROSIS [None]
